FAERS Safety Report 7433666-2 (Version None)
Quarter: 2011Q2

REPORT INFORMATION
  Report Type: 
  Country: None (occurrence: None)
  Receive Date: 20110422
  Receipt Date: 20110420
  Transmission Date: 20111010
  Serious: Yes (Hospitalization)
  Sender: FDA-Public Use
  Company Number: US-AMGEN-USASP2010001216

PATIENT
  Age: 12 Month

DRUGS (11)
  1. METROGEL-VAGINAL                   /00012501/ [Concomitant]
     Dosage: UNK UNK, QD
     Route: 064
     Dates: start: 20070704, end: 20100710
  2. BENADRYL [Concomitant]
     Dosage: UNK UNK, QD
     Route: 064
     Dates: start: 20070416, end: 20070418
  3. PLAQUENIL [Concomitant]
     Dosage: 200 MG, QD
     Route: 064
     Dates: start: 20070301, end: 20070905
  4. DARVON [Concomitant]
     Dosage: 130 MG, Q4H
     Route: 064
     Dates: start: 20070606, end: 20070609
  5. PRENATAL VITAMINS                  /01549301/ [Concomitant]
     Dosage: UNK UNK, QD
     Route: 064
     Dates: start: 20070201, end: 20070905
  6. IRON [Concomitant]
     Dosage: UNK UNK, QD
     Route: 064
     Dates: start: 20070327, end: 20070905
  7. SULFASALAZINE [Concomitant]
     Dosage: 1000 MG, QD
     Route: 064
     Dates: start: 20070329, end: 20070712
  8. PREDNISONE [Concomitant]
     Dosage: 10 MG, QD
     Route: 064
     Dates: start: 20061228, end: 20070808
  9. NITROFURANTOIN [Concomitant]
     Dosage: UNK UNK, Q4H
     Route: 064
     Dates: start: 20070704, end: 20070708
  10. RHOGAM [Suspect]
     Dosage: UNK UNK, QD
     Route: 064
     Dates: start: 20070613, end: 20070613
  11. ENBREL [Suspect]
     Indication: RHEUMATOID ARTHRITIS
     Dosage: 50 MG, QWK
     Route: 064
     Dates: start: 20061228, end: 20070130

REACTIONS (3)
  - CLEFT LIP REPAIR [None]
  - OTITIS MEDIA [None]
  - EAR TUBE INSERTION [None]
